FAERS Safety Report 6404621-6 (Version None)
Quarter: 2009Q4

REPORT INFORMATION
  Report Type: 
  Country: None (occurrence: None)
  Receive Date: 20091016
  Receipt Date: 20091012
  Transmission Date: 20100525
  Serious: Yes (Death, Hospitalization, Other)
  Sender: FDA-Public Use
  Company Number: CZ-ROCHE-636860

PATIENT
  Sex: Male

DRUGS (12)
  1. INTERFERON ALFA [Suspect]
     Indication: LYMPHOCYTIC LYMPHOMA
     Dosage: DOSE: 6 MU; RECEIVED FOR ONE YEAR
     Route: 058
     Dates: start: 20040501, end: 20050401
  2. RITUXIMAB [Suspect]
     Indication: LYMPHOCYTIC LYMPHOMA
     Route: 042
     Dates: start: 20030101
  3. RITUXIMAB [Suspect]
     Route: 042
     Dates: start: 20040109, end: 20040130
  4. RITUXIMAB [Suspect]
     Dosage: 4 DOSES AS MONOTHERAPY
     Route: 042
     Dates: start: 20050721, end: 20050811
  5. RITUXIMAB [Suspect]
     Dosage: 4 CYCLES
     Route: 042
     Dates: start: 20060501
  6. CYCLOPHOSPHAMIDE [Suspect]
     Indication: LYMPHOCYTIC LYMPHOMA
     Dosage: 6 CYCLES; 21 DAYS/CYCLE
     Route: 042
     Dates: start: 20030731, end: 20031112
  7. CYCLOPHOSPHAMIDE [Suspect]
     Dosage: 4 CYCLES
     Route: 042
     Dates: start: 20060501
  8. HYDROXYDAUNOMYCIN [Suspect]
     Indication: LYMPHOCYTIC LYMPHOMA
     Dosage: 6 CYCLES; 21 DAYS/CYCLE
     Route: 042
     Dates: start: 20030731, end: 20031112
  9. ONCOVIN [Suspect]
     Indication: LYMPHOCYTIC LYMPHOMA
     Dosage: 6 CYCLES; 21 DAYS/CYCLE
     Route: 042
     Dates: start: 20030731, end: 20031112
  10. PREDNISONE [Suspect]
     Indication: LYMPHOCYTIC LYMPHOMA
     Dosage: 6 CYCLES; 21 DAYS/CYCLE
     Route: 042
     Dates: start: 20030731, end: 20031112
  11. FLUDARABINE [Suspect]
     Indication: LYMPHOCYTIC LYMPHOMA
     Dosage: 28 DAYS CYCLE
     Route: 042
     Dates: start: 20060524, end: 20060830
  12. CHLORAMBUCIL [Concomitant]
     Route: 048
     Dates: start: 20000101, end: 20030701

REACTIONS (5)
  - MALIGNANT NEOPLASM PROGRESSION [None]
  - MULTI-ORGAN FAILURE [None]
  - PNEUMONIA FUNGAL [None]
  - PROGRESSIVE MULTIFOCAL LEUKOENCEPHALOPATHY [None]
  - SEPTIC SHOCK [None]
